FAERS Safety Report 9540875 (Version 2)
Quarter: 2013Q4

REPORT INFORMATION
  Report Type: Report from Study
  Country: GB (occurrence: GB)
  Receive Date: 20130920
  Receipt Date: 20131127
  Transmission Date: 20140711
  Serious: Yes (Death)
  Sender: FDA-Public Use
  Company Number: GB-ABBVIE-13P-167-1149563-00

PATIENT
  Age: 63 Year
  Sex: Female

DRUGS (1)
  1. HUMIRA [Suspect]
     Indication: RHEUMATOID ARTHRITIS
     Route: 058
     Dates: start: 20090706, end: 20120220

REACTIONS (16)
  - Chronic obstructive pulmonary disease [Fatal]
  - Pulmonary fibrosis [Fatal]
  - Sjogren^s syndrome [Fatal]
  - Osteoporosis [Fatal]
  - Hypothyroidism [Fatal]
  - Respiratory failure [Unknown]
  - Condition aggravated [Unknown]
  - Hypophagia [Unknown]
  - Fluid intake reduced [Unknown]
  - Unresponsive to stimuli [Unknown]
  - Asthenia [Unknown]
  - Cachexia [Unknown]
  - Dyspnoea [Unknown]
  - Apnoea [Unknown]
  - Gastrointestinal sounds abnormal [Unknown]
  - Hypopnoea [Unknown]
